FAERS Safety Report 15785527 (Version 1)
Quarter: 2018Q4

REPORT INFORMATION
  Report Type: Spontaneous
  Country: US (occurrence: US)
  Receive Date: 20181228
  Receipt Date: 20181228
  Transmission Date: 20190205
  Serious: No
  Sender: FDA-Public Use
  Company Number: None

PATIENT

DRUGS (1)
  1. MAGNESIUM [Suspect]
     Active Substance: MAGNESIUM
     Dosage: ?          OTHER FREQUENCY:BOTTLE 100 TABLETS;?
     Route: 048

REACTIONS (2)
  - Product label confusion [None]
  - Product label issue [None]
